FAERS Safety Report 10694790 (Version 1)
Quarter: 2015Q1

REPORT INFORMATION
  Report Type: Spontaneous
  Country: US (occurrence: None)
  Receive Date: 20150106
  Receipt Date: 20150106
  Transmission Date: 20150721
  Serious: Yes (Death, Hospitalization)
  Sender: FDA-Public Use
  Company Number: None

PATIENT
  Age: 61 Year
  Sex: Male
  Weight: 113.6 kg

DRUGS (4)
  1. ELOXATIN [Suspect]
     Active Substance: OXALIPLATIN
     Dates: end: 20141006
  2. 5-FLOUROURACIL [Suspect]
     Active Substance: FLUOROURACIL
     Dates: end: 20141013
  3. CARBOPLATIN. [Suspect]
     Active Substance: CARBOPLATIN
     Dates: end: 20140815
  4. TAXOL [Suspect]
     Active Substance: PACLITAXEL
     Dates: end: 20140815

REACTIONS (2)
  - Cardiac arrest [None]
  - Stridor [None]

NARRATIVE: CASE EVENT DATE: 20141226
